FAERS Safety Report 6019628-0 (Version None)
Quarter: 2008Q4

REPORT INFORMATION
  Report Type: 
  Country: None (occurrence: None)
  Receive Date: 20081224
  Receipt Date: 20081216
  Transmission Date: 20090506
  Serious: Yes (Hospitalization)
  Sender: FDA-Public Use
  Company Number: US-ELI_LILLY_AND_COMPANY-US200812004345

PATIENT
  Age: 30 Year
  Sex: Female

DRUGS (2)
  1. CYMBALTA [Suspect]
     Indication: BACK PAIN
     Dosage: 1 D/F, UNK
  2. VICODIN [Concomitant]

REACTIONS (3)
  - SURGERY [None]
  - VOMITING [None]
  - WEIGHT DECREASED [None]
